FAERS Safety Report 5425103-4 (Version None)
Quarter: 2007Q3

REPORT INFORMATION
  Report Type: 
  Country: None (occurrence: None)
  Receive Date: 20070824
  Receipt Date: 20070815
  Transmission Date: 20080115
  Serious: Yes (Other)
  Sender: FDA-Public Use
  Company Number: US-JNJFOC-20070803675

PATIENT
  Age: 25 Year
  Sex: Male
  Weight: 88.45 kg

DRUGS (4)
  1. INVEGA [Suspect]
     Indication: DRUG USE FOR UNKNOWN INDICATION
     Route: 048
  2. BUSPIRONE [Concomitant]
     Route: 048
  3. SERTRALINE [Concomitant]
     Indication: ANTIDEPRESSANT THERAPY
     Route: 048
  4. ZOCOR [Concomitant]
     Route: 048

REACTIONS (1)
  - WEIGHT INCREASED [None]
